FAERS Safety Report 11845720 (Version 5)
Quarter: 2016Q1

REPORT INFORMATION
  Report Type: Report from Study
  Country: NL (occurrence: NL)
  Receive Date: 20151217
  Receipt Date: 20160114
  Transmission Date: 20160526
  Serious: Yes (Hospitalization)
  Sender: FDA-Public Use
  Company Number: NL-ABBVIE-15P-114-1471171-00

PATIENT
  Age: 60 Year
  Sex: Female

DRUGS (5)
  1. MADOPAR DISPERSIBL [Suspect]
     Active Substance: BENSERAZIDE HYDROCHLORIDE\LEVODOPA
     Dosage: MEDICATION DECREASED
     Route: 065
  2. VITAMIN B12 [Concomitant]
     Active Substance: CYANOCOBALAMIN
     Indication: PRODUCT USED FOR UNKNOWN INDICATION
     Route: 065
  3. DUODOPA [Suspect]
     Active Substance: CARBIDOPA\LEVODOPA
     Indication: PARKINSON^S DISEASE
     Dosage: 20/5 MG/ML, SEE NARRATIVE
     Route: 050
     Dates: start: 20150914, end: 20151224
  4. MADOPAR DISPERSIBL [Suspect]
     Active Substance: BENSERAZIDE HYDROCHLORIDE\LEVODOPA
     Dosage: SWITCHED HIGH DOSE
     Route: 065
  5. MADOPAR DISPERSIBL [Suspect]
     Active Substance: BENSERAZIDE HYDROCHLORIDE\LEVODOPA
     Indication: PARKINSON^S DISEASE
     Route: 065
     Dates: start: 20151228

REACTIONS (49)
  - Muscle spasms [Not Recovered/Not Resolved]
  - Paraesthesia [Unknown]
  - Tension [Unknown]
  - Drug ineffective [Unknown]
  - Gait disturbance [Recovered/Resolved]
  - Underdose [Recovered/Resolved]
  - Hypophagia [Unknown]
  - Off label use [Not Recovered/Not Resolved]
  - Limb discomfort [Recovered/Resolved]
  - Asthenia [Unknown]
  - Hypoaesthesia [Unknown]
  - Vitamin B12 increased [Unknown]
  - Acute polyneuropathy [Unknown]
  - Parkinson^s disease [Unknown]
  - Hypokinesia [Recovering/Resolving]
  - Grip strength decreased [Unknown]
  - Psychiatric symptom [Unknown]
  - Nausea [Recovered/Resolved]
  - Burning sensation [Unknown]
  - Foot deformity [Recovered/Resolved]
  - Dyskinesia [Recovered/Resolved]
  - Feeling abnormal [Unknown]
  - Sensory disturbance [Unknown]
  - Blood folate decreased [Unknown]
  - Paraesthesia [Not Recovered/Not Resolved]
  - Hand deformity [Recovering/Resolving]
  - Fall [Recovered/Resolved]
  - Malaise [Unknown]
  - Hallucination [Recovered/Resolved]
  - Urine analysis abnormal [Unknown]
  - Musculoskeletal stiffness [Unknown]
  - Hyperkinesia [Unknown]
  - Medication error [Unknown]
  - Pain in extremity [Unknown]
  - On and off phenomenon [Unknown]
  - Abasia [Unknown]
  - Muscle spasms [Unknown]
  - Overdose [Unknown]
  - Vitamin B6 deficiency [Not Recovered/Not Resolved]
  - Frequent bowel movements [Unknown]
  - Somnolence [Recovering/Resolving]
  - Musculoskeletal stiffness [Recovered/Resolved]
  - Parkinsonism [Unknown]
  - Eating disorder [Unknown]
  - Dyskinesia [Unknown]
  - Muscular weakness [Unknown]
  - Nerve injury [Unknown]
  - Confusional state [Unknown]
  - Abnormal behaviour [Unknown]

NARRATIVE: CASE EVENT DATE: 201509
